FAERS Safety Report 10413395 (Version 2)
Quarter: 2014Q3

REPORT INFORMATION
  Report Type: Spontaneous
  Country: US (occurrence: US)
  Receive Date: 20140827
  Receipt Date: 20140909
  Transmission Date: 20150326
  Serious: Yes (Hospitalization)
  Sender: FDA-Public Use
  Company Number: US-GLAXOSMITHKLINE-A1086106A

PATIENT
  Sex: Female

DRUGS (9)
  1. ALBUTEROL NEBULIZER [Concomitant]
     Active Substance: ALBUTEROL
  2. PREDNISONE. [Concomitant]
     Active Substance: PREDNISONE
  3. CARDIAC MEDICATION [Concomitant]
     Active Substance: UNSPECIFIED INGREDIENT
  4. OXYGEN. [Concomitant]
     Active Substance: OXYGEN
  5. ADVAIR HFA [Suspect]
     Active Substance: FLUTICASONE PROPIONATE\SALMETEROL XINAFOATE
     Indication: BRONCHIAL DISORDER
     Dosage: 1PUFF TWICE PER DAY
     Route: 055
     Dates: start: 2001
  6. VENTOLIN [Suspect]
     Active Substance: ALBUTEROL SULFATE
     Indication: CHRONIC OBSTRUCTIVE PULMONARY DISEASE
     Route: 055
  7. WATER PILL [Concomitant]
     Active Substance: UNSPECIFIED INGREDIENT
  8. PRILOSEC [Concomitant]
     Active Substance: OMEPRAZOLE MAGNESIUM
  9. ZANTAC [Concomitant]
     Active Substance: RANITIDINE HYDROCHLORIDE

REACTIONS (6)
  - Lung neoplasm malignant [Unknown]
  - Aspiration [Unknown]
  - General physical health deterioration [Unknown]
  - Disease progression [Unknown]
  - Pulmonary function test decreased [Unknown]
  - Chronic obstructive pulmonary disease [Unknown]

NARRATIVE: CASE EVENT DATE: 2004
